FAERS Safety Report 11231227 (Version 1)
Quarter: 2015Q2

REPORT INFORMATION
  Report Type: Spontaneous
  Country: US (occurrence: None)
  Receive Date: 20150629
  Receipt Date: 20150629
  Transmission Date: 20150821
  Serious: No
  Sender: FDA-Public Use
  Company Number: None

PATIENT
  Age: 68 Year
  Sex: Male
  Weight: 93.9 kg

DRUGS (3)
  1. IMIQUIMOD 5% [Suspect]
     Active Substance: IMIQUIMOD
     Indication: BASAL CELL CARCINOMA
     Dosage: 1 PACKET ?~ EVERY 3 DAYS?GIVEN INTO /UNDER THE SKIN
     Dates: start: 20150601, end: 20150627
  2. LOSARTAN [Concomitant]
     Active Substance: LOSARTAN
  3. ASPIRIN. [Concomitant]
     Active Substance: ASPIRIN

REACTIONS (3)
  - Toothache [None]
  - Pain in extremity [None]
  - Discomfort [None]

NARRATIVE: CASE EVENT DATE: 20150627
